FAERS Safety Report 25382911 (Version 9)
Quarter: 2025Q3

REPORT INFORMATION
  Report Type: Report from Study
  Country: CL (occurrence: CL)
  Receive Date: 20250602
  Receipt Date: 20250926
  Transmission Date: 20251020
  Serious: Yes (Hospitalization, Other)
  Sender: TAKEDA
  Company Number: CL-TAKEDA-2025TUS050614

PATIENT
  Age: 26 Year
  Sex: Male

DRUGS (1)
  1. IDURSULFASE [Suspect]
     Active Substance: IDURSULFASE
     Indication: Supplementation therapy
     Dosage: 0.5 MILLIGRAM/KILOGRAM, 1/WEEK

REACTIONS (4)
  - Syncope [Recovered/Resolved]
  - Crying [Recovering/Resolving]
  - Suicidal ideation [Recovering/Resolving]
  - Affect lability [Not Recovered/Not Resolved]

NARRATIVE: CASE EVENT DATE: 20250525
